FAERS Safety Report 6209791-0 (Version None)
Quarter: 2009Q2

REPORT INFORMATION
  Report Type: 
  Country: None (occurrence: None)
  Receive Date: 20090527
  Receipt Date: 20090519
  Transmission Date: 20091009
  Serious: Yes (Other)
  Sender: FDA-Public Use
  Company Number: 2008SP025848

PATIENT
  Age: 43 Year
  Sex: Male
  Weight: 96 kg

DRUGS (5)
  1. TEMODAL [Suspect]
     Indication: GLIOSARCOMA
     Dosage: 165 MG; QD; PO
     Route: 048
     Dates: start: 20080929, end: 20081027
  2. DIFFU K [Concomitant]
  3. KEPPRA 500 [Concomitant]
  4. ZOLPIDEM TARTRATE [Concomitant]
  5. MEDROL [Concomitant]

REACTIONS (6)
  - ABDOMINAL PAIN [None]
  - ALANINE AMINOTRANSFERASE INCREASED [None]
  - ASPARTATE AMINOTRANSFERASE INCREASED [None]
  - CEREBRAL DISORDER [None]
  - EYE DISORDER [None]
  - IATROGENIC INJURY [None]
